FAERS Safety Report 17865858 (Version 5)
Quarter: 2020Q3

REPORT INFORMATION
  Report Type: Spontaneous
  Country: US (occurrence: US)
  Receive Date: 20200605
  Receipt Date: 20200917
  Transmission Date: 20201103
  Serious: Yes (Other)
  Sender: FDA-Public Use
  Company Number: US-PFIZER INC-2020220443

PATIENT
  Age: 61 Year
  Sex: Male

DRUGS (2)
  1. SUTENT [Suspect]
     Active Substance: SUNITINIB MALATE
     Dosage: 50 MG, CYCLIC (ONCE DAILY, 4 WEEKS ON AND 2 WEEKS OFF. TAKE WHOLE WITH WATER)
     Route: 048
     Dates: start: 202006, end: 2020
  2. SUTENT [Suspect]
     Active Substance: SUNITINIB MALATE
     Indication: RENAL CANCER STAGE IV
     Dosage: UNK
     Dates: start: 2018

REACTIONS (10)
  - Cancer pain [Unknown]
  - Diarrhoea [Recovering/Resolving]
  - Hypotension [Unknown]
  - Hypertension [Unknown]
  - Peripheral swelling [Unknown]
  - Somnolence [Unknown]
  - Pain [Not Recovered/Not Resolved]
  - Back pain [Unknown]
  - Chest pain [Unknown]
  - Hypothyroidism [Unknown]
